FAERS Safety Report 7166978-0 (Version None)
Quarter: 2010Q4

REPORT INFORMATION
  Report Type: 
  Country: None (occurrence: None)
  Receive Date: 20101216
  Receipt Date: 20101207
  Transmission Date: 20110411
  Serious: Yes (Other)
  Sender: FDA-Public Use
  Company Number: A0805494A

PATIENT
  Age: 61 Year
  Sex: Male

DRUGS (2)
  1. AVANDIA [Suspect]
     Indication: DIABETES MELLITUS
     Route: 048
     Dates: start: 20000101
  2. HUMULIN 70/30 [Concomitant]

REACTIONS (1)
  - CEREBROVASCULAR ACCIDENT [None]
